FAERS Safety Report 5634569-6 (Version None)
Quarter: 2008Q1

REPORT INFORMATION
  Report Type: 
  Country: None (occurrence: None)
  Receive Date: 20080222
  Receipt Date: 20080215
  Transmission Date: 20080703
  Serious: Yes (Hospitalization)
  Sender: FDA-Public Use
  Company Number: PHNR2007AU02010

PATIENT
  Age: 68 Year
  Sex: Male

DRUGS (24)
  1. TRANSDERM-NITRO [Suspect]
     Indication: ANGINA PECTORIS
     Dosage: (5MG/24 HRS) , 1 DAILY
     Route: 062
  2. AMARYL [Concomitant]
     Dosage: 1/2 DAILY M.D.U
  3. AMITRIPTYLINE HYDROCHLORIDE [Concomitant]
     Dosage: 2 TABLETS/DAY
  4. ASTRIX [Concomitant]
     Dosage: 1 DAILY M.D.U
  5. CLONIDINE HYDROCHLORIDE [Concomitant]
     Dosage: HALF NOCTE
  6. CODALGIN FORTE [Concomitant]
     Dosage: 2  TID M.D.U
  7. COLOXYL WITH SENNA [Concomitant]
     Dosage: 2 NOCTE M.D.U
  8. DIAFORMIN [Concomitant]
     Dosage: 2  BID M.D.U
  9. DIAZEPAM [Concomitant]
     Dosage: 1 NOCTE M.D.U
  10. ENDONE [Concomitant]
     Dosage: 2 NOCTE  PRN
  11. LAMISIL [Concomitant]
     Dosage: M.D.U
  12. LIPEX [Concomitant]
     Dosage: 1  NOCTE
  13. MOBIC [Concomitant]
     Dosage: 1  NOCTE
  14. MYCOSTATIN [Concomitant]
     Dosage: DAILY
  15. NEURONTIN [Concomitant]
     Dosage: 5 DAILY M.D.U
  16. NEXIUM [Concomitant]
     Dosage: 1  BID M.D.U
  17. NOVOLOG MIX 70/30 [Concomitant]
     Dosage: M.D.U
  18. OROXINE [Concomitant]
     Dosage: 1  BID M.D.U
  19. OXYCONTIN [Concomitant]
     Dosage: 2 DAILY
  20. PANAMAX [Concomitant]
     Dosage: 2 DF, QID
  21. TAMSULOSIN HCL [Concomitant]
     Dosage: 1 NOCTE
  22. TRAMADOL HCL [Concomitant]
     Dosage: 1 NOCTE M.D.U
  23. WARTNER [Concomitant]
     Dosage: M.D.U
  24. XYLOCAINE VISCOUS [Concomitant]
     Dosage: M.D.U

REACTIONS (1)
  - APNOEA [None]
